FAERS Safety Report 6896335-3 (Version None)
Quarter: 2010Q3

REPORT INFORMATION
  Report Type: 
  Country: None (occurrence: None)
  Receive Date: 20100728
  Receipt Date: 20100715
  Transmission Date: 20110219
  Serious: Yes (Other)
  Sender: FDA-Public Use
  Company Number: DSA_43532_2010

PATIENT
  Sex: Female

DRUGS (2)
  1. XENAZINE [Suspect]
     Indication: BALLISMUS
     Dosage: (25 MG TID ORAL)
     Route: 048
     Dates: start: 20100609
  2. XENAZINE [Suspect]
     Indication: CHOREA
     Dosage: (25 MG TID ORAL)
     Route: 048
     Dates: start: 20100609

REACTIONS (1)
  - FRACTURE [None]
